FAERS Safety Report 24739585 (Version 2)
Quarter: 2024Q4

REPORT INFORMATION
  Report Type: Spontaneous
  Country: US (occurrence: US)
  Receive Date: 20241216
  Receipt Date: 20241220
  Transmission Date: 20250114
  Serious: No
  Sender: SANOFI AVENTIS
  Company Number: US-SA-2024SA369284

PATIENT
  Age: 13 Year
  Sex: Male
  Weight: 51.14 kg

DRUGS (6)
  1. DUPIXENT [Suspect]
     Active Substance: DUPILUMAB
     Indication: Dermatitis atopic
     Dosage: 200 MG, QOW
     Route: 058
     Dates: start: 20221129
  2. DUPIXENT [Suspect]
     Active Substance: DUPILUMAB
     Dosage: 300 MG, QOW
     Route: 058
     Dates: start: 2024
  3. NORDITROPIN [Concomitant]
     Active Substance: SOMATROPIN
     Dosage: UNK
  4. QUILLIVANT XR [Concomitant]
     Active Substance: METHYLPHENIDATE HYDROCHLORIDE
     Dosage: UNK
  5. EPINEPHRINE [Concomitant]
     Active Substance: EPINEPHRINE
     Dosage: UNK
  6. COMIRNATY [Concomitant]
     Dosage: UNK

REACTIONS (4)
  - Dermatitis atopic [Unknown]
  - Scratch [Not Recovered/Not Resolved]
  - Eczema asteatotic [Unknown]
  - Off label use [Unknown]

NARRATIVE: CASE EVENT DATE: 20240101
